FAERS Safety Report 5572368-4 (Version None)
Quarter: 2007Q4

REPORT INFORMATION
  Report Type: 
  Country: None (occurrence: None)
  Receive Date: 20071219
  Receipt Date: 20071212
  Transmission Date: 20080405
  Serious: Yes (Other)
  Sender: FDA-Public Use
  Company Number: 2007-04157

PATIENT
  Age: 46 Year
  Sex: 0

DRUGS (2)
  1. VELCADE [Suspect]
     Indication: PRIMARY AMYLOIDOSIS
     Dates: start: 20070501
  2. DEXAMETHASONE TAB [Concomitant]

REACTIONS (5)
  - AUTONOMIC NERVOUS SYSTEM IMBALANCE [None]
  - GASTROINTESTINAL TOXICITY [None]
  - HEPATOMEGALY [None]
  - MUSCLE ATROPHY [None]
  - NEUROPATHY [None]
